FAERS Safety Report 19715422 (Version 1)
Quarter: 2021Q3

REPORT INFORMATION
  Report Type: Spontaneous
  Country: US (occurrence: US)
  Receive Date: 20210818
  Receipt Date: 20210818
  Transmission Date: 20211014
  Serious: Yes (Hospitalization)
  Sender: FDA-Public Use
  Company Number: None

PATIENT
  Age: 46 Year
  Sex: Female

DRUGS (1)
  1. REGEN?COV [Suspect]
     Active Substance: CASIRIVIMAB\IMDEVIMAB
     Indication: SARS-COV-2 TEST POSITIVE
     Dosage: 1200 MG/50 ML
     Route: 042
     Dates: start: 20210802, end: 20210802

REACTIONS (5)
  - Dizziness [None]
  - Anxiety [None]
  - Pain in extremity [None]
  - Paranasal sinus discomfort [None]
  - Pain [None]

NARRATIVE: CASE EVENT DATE: 20210802
